FAERS Safety Report 4505775-9 (Version None)
Quarter: 2004Q4

REPORT INFORMATION
  Report Type: 
  Country: None (occurrence: None)
  Receive Date: 20041119
  Receipt Date: 20041116
  Transmission Date: 20050328
  Serious: Yes (Death)
  Sender: FDA-Public Use
  Company Number: US-JNJFOC-20041104186

PATIENT
  Age: 73 Year
  Sex: Male

DRUGS (1)
  1. CLADRIBINE [Suspect]
     Dosage: CONTINUOUS INFUSION FOR 7 DAYS
     Route: 042

REACTIONS (4)
  - COUGH [None]
  - DYSPNOEA [None]
  - FATIGUE [None]
  - PANCYTOPENIA [None]
